FAERS Safety Report 17797330 (Version 1)
Quarter: 2020Q2

REPORT INFORMATION
  Report Type: Report from Study
  Country: ZA (occurrence: ZA)
  Receive Date: 20200518
  Receipt Date: 20200518
  Transmission Date: 20200714
  Serious: Yes (Hospitalization)
  Sender: FDA-Public Use
  Company Number: NVSC2020ZA133012

PATIENT
  Sex: Female

DRUGS (1)
  1. CO-DIOVAN [Suspect]
     Active Substance: HYDROCHLOROTHIAZIDE\VALSARTAN
     Indication: HYPERTENSION
     Dosage: 1 DF (320/25 MG), QD
     Route: 048

REACTIONS (2)
  - Blood pressure inadequately controlled [Unknown]
  - Diabetes mellitus inadequate control [Unknown]
